FAERS Safety Report 21416820 (Version 1)
Quarter: 2022Q4

REPORT INFORMATION
  Report Type: Spontaneous
  Country: US (occurrence: US)
  Receive Date: 20221006
  Receipt Date: 20221006
  Transmission Date: 20230113
  Serious: Yes (Hospitalization, Other)
  Sender: FDA-Public Use
  Company Number: US-MLMSERVICE-20220920-3808892-1

PATIENT
  Age: 61 Year
  Sex: Female

DRUGS (15)
  1. OXYCODONE [Suspect]
     Active Substance: OXYCODONE
     Indication: Musculoskeletal pain
     Dosage: UNK (5 TO 10 MG EVERY 4 TO 6 HOURS)
     Route: 065
  2. OXYCODONE AND ACETAMINOPHEN [Suspect]
     Active Substance: ACETAMINOPHEN\OXYCODONE HYDROCHLORIDE
     Indication: Musculoskeletal pain
     Dosage: UNK, 5 TO 10 MG EVERY 4 TO 6 HOURS
     Route: 065
  3. PROPOXYPHENE HYDROCHLORIDE [Suspect]
     Active Substance: PROPOXYPHENE HYDROCHLORIDE
     Indication: Dysmenorrhoea
     Dosage: UNK
     Route: 065
  4. DIPHENHYDRAMINE [Suspect]
     Active Substance: DIPHENHYDRAMINE
     Indication: Drug withdrawal syndrome
     Dosage: UNK
     Route: 065
  5. ACETAMINOPHEN\PROPOXYPHENE HYDROCHLORIDE [Suspect]
     Active Substance: ACETAMINOPHEN\PROPOXYPHENE HYDROCHLORIDE
     Indication: Dysmenorrhoea
     Dosage: UNK
     Route: 065
  6. GABAPENTIN [Concomitant]
     Active Substance: GABAPENTIN
     Indication: Product used for unknown indication
     Dosage: 900 MG, QD, UP TO 900 MG/D
     Route: 065
  7. GABAPENTIN [Concomitant]
     Active Substance: GABAPENTIN
     Dosage: 900 MG, QD, UP TO 900 MG/D
     Route: 065
  8. DULOXETINE [Concomitant]
     Active Substance: DULOXETINE
     Indication: Dysmenorrhoea
     Dosage: UNK, TITRATED TO 60 MG/D
     Route: 065
  9. DULOXETINE [Concomitant]
     Active Substance: DULOXETINE
     Indication: Migraine
  10. DULOXETINE [Concomitant]
     Active Substance: DULOXETINE
     Indication: Sciatica
  11. DULOXETINE [Concomitant]
     Active Substance: DULOXETINE
     Indication: Musculoskeletal pain
  12. DICLOFENAC [Concomitant]
     Active Substance: DICLOFENAC
     Indication: Dysmenorrhoea
     Dosage: 100 MG, QD
     Route: 065
  13. DICLOFENAC [Concomitant]
     Active Substance: DICLOFENAC
     Indication: Migraine
  14. DICLOFENAC [Concomitant]
     Active Substance: DICLOFENAC
     Indication: Sciatica
  15. DICLOFENAC [Concomitant]
     Active Substance: DICLOFENAC
     Indication: Musculoskeletal pain

REACTIONS (17)
  - Vomiting [Recovering/Resolving]
  - Depressed mood [Recovering/Resolving]
  - Hypokalaemia [Recovering/Resolving]
  - Hypercalcaemia [Recovering/Resolving]
  - Unmasking of previously unidentified disease [Recovering/Resolving]
  - Insomnia [Recovering/Resolving]
  - Psychotic disorder [Recovering/Resolving]
  - Hypochloraemia [Recovering/Resolving]
  - Fatigue [Recovering/Resolving]
  - Diarrhoea [Recovering/Resolving]
  - Decreased appetite [Recovered/Resolved]
  - Drug withdrawal syndrome [Recovering/Resolving]
  - Hallucination, visual [Recovered/Resolved]
  - Delusion [Recovered/Resolved]
  - Hallucination, auditory [Recovered/Resolved]
  - Intentional product misuse [Unknown]
  - Anxiety [Recovered/Resolved]
